FAERS Safety Report 8683872 (Version 3)
Quarter: 2014Q1

REPORT INFORMATION
  Report Type: Spontaneous
  Country: US (occurrence: US)
  Receive Date: 20120726
  Receipt Date: 20140312
  Transmission Date: 20141002
  Serious: Yes (Hospitalization)
  Sender: FDA-Public Use
  Company Number: US-INCYTE CORPORATION-2012IN001335

PATIENT
  Sex: Male
  Weight: 129.25 kg

DRUGS (3)
  1. JAKAFI [Suspect]
     Indication: MYELOFIBROSIS
     Dosage: 20 MG, BID
     Route: 048
     Dates: start: 20120622
  2. JAKAFI [Suspect]
     Dosage: 10 MG, BID
     Route: 048
     Dates: start: 20120626
  3. JAKAFI [Suspect]
     Dosage: NOT SPECIFIED

REACTIONS (3)
  - Blood count abnormal [Unknown]
  - Medication error [None]
  - Drug ineffective [Unknown]
